FAERS Safety Report 9147438 (Version 1)
Quarter: 2013Q1

REPORT INFORMATION
  Report Type: Spontaneous
  Country: US (occurrence: US)
  Receive Date: 20130307
  Receipt Date: 20130307
  Transmission Date: 20140127
  Serious: No
  Sender: FDA-Public Use
  Company Number: US-BAYER-2013-022301

PATIENT
  Age: 40 Year
  Sex: Female
  Weight: 117.91 kg

DRUGS (5)
  1. BETASERON [Suspect]
     Dosage: 0.25 MG, QOD
     Route: 058
  2. MULTIVITAMIN [Concomitant]
  3. BIOTIN [Concomitant]
     Dosage: 5000 UNK, UNK
  4. FLUOXETINE [Concomitant]
     Dosage: 10 MG, UNK
  5. XANAX [Concomitant]
     Dosage: 0.5 MG, UNK

REACTIONS (2)
  - Headache [Unknown]
  - Blood pressure increased [Unknown]
